FAERS Safety Report 9797900 (Version 1)
Quarter: 2014Q1

REPORT INFORMATION
  Report Type: Spontaneous
  Country: US (occurrence: US)
  Receive Date: 20140106
  Receipt Date: 20140106
  Transmission Date: 20141002
  Serious: No
  Sender: FDA-Public Use
  Company Number: US-BAYER-2013-154763

PATIENT
  Age: 30 Year
  Sex: Female
  Weight: 77.1 kg

DRUGS (1)
  1. YAZ [Suspect]
     Indication: CONTRACEPTION
     Dosage: 1 DF, QD
     Route: 048
     Dates: start: 200612, end: 200706

REACTIONS (2)
  - Hypersensitivity [Recovered/Resolved]
  - Rash papular [Recovered/Resolved]
